FAERS Safety Report 6241615-8 (Version None)
Quarter: 2009Q2

REPORT INFORMATION
  Report Type: 
  Country: None (occurrence: None)
  Receive Date: 20090623
  Receipt Date: 20040923
  Transmission Date: 20091009
  Serious: Yes (Hospitalization)
  Sender: FDA-Public Use
  Company Number: CZ-ROCHE-411177

PATIENT
  Sex: Male
  Weight: 90 kg

DRUGS (21)
  1. DACLIZUMAB [Suspect]
     Route: 042
     Dates: start: 20040915
  2. DACLIZUMAB [Suspect]
     Route: 042
     Dates: start: 20040929
  3. MYCOPHENOLATE MOFETIL [Suspect]
     Dosage: DRUG REPORTED: MYCOPHENOLATE
     Route: 048
     Dates: start: 20040915, end: 20040917
  4. MYCOPHENOLATE MOFETIL [Suspect]
     Dosage: DRUG REPORTED: MYCOPHENOLATE
     Route: 048
     Dates: start: 20070427
  5. TACROLIMUS [Suspect]
     Route: 048
     Dates: start: 20040918
  6. TACROLIMUS [Suspect]
     Route: 048
     Dates: start: 20041111
  7. TACROLIMUS [Suspect]
     Route: 048
     Dates: start: 20050209
  8. TACROLIMUS [Suspect]
     Route: 048
     Dates: start: 20070319
  9. SIROLIMUS [Suspect]
     Route: 048
     Dates: start: 20040915, end: 20040918
  10. METHYLPREDNISOLONE [Suspect]
     Route: 042
     Dates: start: 20040915
  11. METHYLPREDNISOLONE [Suspect]
     Route: 042
     Dates: start: 20040916
  12. FAMOTIDINE [Concomitant]
     Route: 042
     Dates: start: 20040915, end: 20040921
  13. METOPROLOL SUCCINATE [Concomitant]
     Route: 048
     Dates: start: 20040916
  14. METOPROLOL SUCCINATE [Concomitant]
     Route: 048
     Dates: start: 20041001
  15. METOPROLOL SUCCINATE [Concomitant]
     Route: 048
     Dates: start: 20050613
  16. AMBROXOL [Concomitant]
     Route: 042
     Dates: start: 20040916, end: 20040921
  17. PREDNISONE [Suspect]
     Route: 048
     Dates: start: 20040917
  18. PREDNISONE [Suspect]
     Route: 048
     Dates: start: 20041111
  19. PREDNISONE [Suspect]
     Route: 048
     Dates: start: 20050209
  20. PREDNISONE [Suspect]
     Route: 048
     Dates: start: 20050314
  21. AMPHOTERICIN B [Concomitant]
     Dosage: DRUG REPORTED: AMPHOTERICIN B ORAL
     Route: 048
     Dates: start: 20040916, end: 20041019

REACTIONS (1)
  - PANCREATITIS ACUTE [None]
